FAERS Safety Report 5723182-8 (Version None)
Quarter: 2008Q2

REPORT INFORMATION
  Report Type: 
  Country: None (occurrence: None)
  Receive Date: 20080423
  Receipt Date: 20070906
  Transmission Date: 20081010
  Serious: Yes (Other)
  Sender: FDA-Public Use
  Company Number: 247283

PATIENT
  Sex: Female

DRUGS (1)
  1. AVASTATIN(BEVACIZUMAB) POWDER AND SOLVENT FOR SOLUTION FOR INFUSION, 1 [Suspect]
     Indication: RENAL CELL CARCINOMA
     Dosage: 930 MG
     Dates: start: 20070827

REACTIONS (1)
  - METASTATIC NEOPLASM [None]
